FAERS Safety Report 6185381-3 (Version None)
Quarter: 2009Q2

REPORT INFORMATION
  Report Type: 
  Country: None (occurrence: None)
  Receive Date: 20090511
  Receipt Date: 20090501
  Transmission Date: 20091009
  Serious: Yes (Other)
  Sender: FDA-Public Use
  Company Number: US-BAYER-200911377BCC

PATIENT
  Age: 59 Year
  Sex: Male
  Weight: 136 kg

DRUGS (14)
  1. ORIGINAL ALKA-SELTZER TABLETS [Suspect]
     Indication: ABDOMINAL DISCOMFORT
     Dosage: TOTAL DAILY DOSE: 4 DF
     Dates: start: 20090416
  2. ASPIRIN [Suspect]
     Indication: DRUG USE FOR UNKNOWN INDICATION
  3. ACTOS [Concomitant]
  4. DILTIAZEM [Concomitant]
  5. GLIMEPIRIDE [Concomitant]
  6. METFORMIN HCL [Concomitant]
  7. TOPROL-XL [Concomitant]
  8. ORACEA [Concomitant]
  9. QUINAPRIL [Concomitant]
  10. PLAVIX [Concomitant]
  11. SIMVASTATIN [Concomitant]
  12. TERAZOSIN HCL [Concomitant]
  13. METROGEL [Concomitant]
  14. OMEPRAZOLE [Concomitant]

REACTIONS (6)
  - DIZZINESS [None]
  - GASTRITIS [None]
  - HAEMATOCHEZIA [None]
  - LABORATORY TEST ABNORMAL [None]
  - LETHARGY [None]
  - PRESYNCOPE [None]
